FAERS Safety Report 6449969-4 (Version None)
Quarter: 2009Q4

REPORT INFORMATION
  Report Type: 
  Country: None (occurrence: None)
  Receive Date: 20091120
  Receipt Date: 20091120
  Transmission Date: 20100525
  Serious: Yes (Other)
  Sender: FDA-Public Use
  Company Number: None

PATIENT
  Sex: Female
  Weight: 75.2971 kg

DRUGS (1)
  1. YASMIN [Suspect]
     Dates: start: 20070501, end: 20091115

REACTIONS (1)
  - DEEP VEIN THROMBOSIS [None]
